FAERS Safety Report 21559081 (Version 1)
Quarter: 2022Q4

REPORT INFORMATION
  Report Type: Spontaneous
  Country: US (occurrence: None)
  Receive Date: 20221104
  Receipt Date: 20221104
  Transmission Date: 20230113
  Serious: Yes (Hospitalization)
  Sender: FDA-Public Use
  Company Number: None

PATIENT
  Sex: Female

DRUGS (1)
  1. NUCALA [Suspect]
     Active Substance: MEPOLIZUMAB
     Indication: Asthma
     Dosage: OTHER FREQUENCY : EVERY29DAYS;?
     Route: 058
     Dates: start: 20220705

REACTIONS (4)
  - Drug ineffective [None]
  - Nephrolithiasis [None]
  - Diverticulitis [None]
  - Therapy interrupted [None]
